FAERS Safety Report 6300995-5 (Version None)
Quarter: 2009Q3

REPORT INFORMATION
  Report Type: 
  Country: None (occurrence: None)
  Receive Date: 20090806
  Receipt Date: 20090806
  Transmission Date: 20100115
  Serious: Yes (Hospitalization)
  Sender: FDA-Public Use
  Company Number: None

PATIENT
  Sex: Male
  Weight: 68.2 kg

DRUGS (5)
  1. LEVAQUIN [Suspect]
     Indication: URINARY TRACT INFECTION
     Dosage: 500MG DAILY ORALLY
     Route: 048
     Dates: start: 20080820
  2. OXYCODONE HCL AND ACETAMINOPHEN [Concomitant]
  3. CYMBALTA [Concomitant]
  4. ZANTAC [Concomitant]
  5. NORVASC [Concomitant]

REACTIONS (4)
  - ABDOMINAL DISCOMFORT [None]
  - HEADACHE [None]
  - NAUSEA [None]
  - VOMITING [None]
